FAERS Safety Report 9790513 (Version 1)
Quarter: 2013Q4

REPORT INFORMATION
  Report Type: Spontaneous
  Country: AU (occurrence: AU)
  Receive Date: 20131231
  Receipt Date: 20131231
  Transmission Date: 20140711
  Serious: Yes (Hospitalization, Other)
  Sender: FDA-Public Use
  Company Number: AU-ABBVIE-13P-008-1182730-00

PATIENT
  Sex: 0

DRUGS (1)
  1. LUCRIN [Suspect]
     Indication: PRODUCT USED FOR UNKNOWN INDICATION
     Dates: start: 20130305

REACTIONS (4)
  - Spinal disorder [Unknown]
  - Hypoaesthesia [Unknown]
  - Monoplegia [Unknown]
  - Back pain [Unknown]
